FAERS Safety Report 5083425-3 (Version None)
Quarter: 2006Q3

REPORT INFORMATION
  Report Type: 
  Country: None (occurrence: None)
  Receive Date: 20060818
  Receipt Date: 20060719
  Transmission Date: 20061208
  Serious: Yes (Other)
  Sender: FDA-Public Use
  Company Number: PHEH2006US09293

PATIENT
  Age: 70 Year
  Sex: Female

DRUGS (13)
  1. ZOMETA [Suspect]
     Indication: NON-HODGKIN'S LYMPHOMA
     Dosage: 4 MG Q4WK
     Dates: start: 20051222, end: 20060613
  2. RITUXAN [Concomitant]
     Indication: NON-HODGKIN'S LYMPHOMA
     Dosage: 375MG/M2 ON + OFF
     Dates: start: 20031201
  3. CYTOXAN [Concomitant]
     Dates: start: 20051205, end: 20060515
  4. VINCRISTINE [Concomitant]
     Dates: start: 20051205, end: 20060515
  5. PREDNISONE [Concomitant]
     Dates: start: 20051205, end: 20060515
  6. LEXAPRO [Concomitant]
     Indication: DEPRESSION
     Dosage: 20MG QD
  7. VALTREX [Concomitant]
     Dosage: 400MG BID
  8. BACTRIM DS [Concomitant]
     Dosage: 1 TAB QD M-W-F
  9. DIFLUCAN [Concomitant]
     Dosage: 100MG QD
  10. COMBIVENT                               /GFR/ [Concomitant]
     Dosage: PRN
  11. AMBIEN [Concomitant]
     Indication: INSOMNIA
     Dosage: 5MG HS PRN
  12. RITALIN [Concomitant]
     Dosage: Q8H PRN
  13. TYLENOL W/ CODEINE NO. 3 [Concomitant]
     Indication: PAIN
     Dosage: PRN

REACTIONS (8)
  - BONE DISORDER [None]
  - IMPAIRED HEALING [None]
  - MOUTH ULCERATION [None]
  - OSTEOLYSIS [None]
  - OSTEONECROSIS [None]
  - PAIN [None]
  - POSITRON EMISSION TOMOGRAM ABNORMAL [None]
  - SWELLING [None]
